FAERS Safety Report 8888033 (Version 1)
Quarter: 2012Q4

REPORT INFORMATION
  Report Type: 
  Country: US (occurrence: US)
  Receive Date: 20121106
  Receipt Date: 20121106
  Transmission Date: 20130627
  Serious: Yes (Other)
  Sender: FDA-Public Use
  Company Number: US-PFIZER INC-2012276658

PATIENT
  Age: 59 Year
  Sex: Female
  Weight: 63.49 kg

DRUGS (3)
  1. CHANTIX [Suspect]
     Indication: SMOKING CESSATION THERAPY
     Dosage: 0.5 mg, 1x/day
     Route: 048
     Dates: start: 2008
  2. CHANTIX [Suspect]
     Dosage: UNK
     Route: 048
  3. ALBUTEROL [Concomitant]
     Indication: CHRONIC OBSTRUCTIVE PULMONARY DISEASE
     Dosage: UNK, 4x/day

REACTIONS (5)
  - Neoplasm malignant [Unknown]
  - Choking [Unknown]
  - Thyroid disorder [Unknown]
  - Aptyalism [Unknown]
  - Dry mouth [Unknown]
